FAERS Safety Report 9460518 (Version 2)
Quarter: 2013Q3

REPORT INFORMATION
  Report Type: Spontaneous
  Country: CO (occurrence: CO)
  Receive Date: 20130815
  Receipt Date: 20130911
  Transmission Date: 20140515
  Serious: Yes (Other)
  Sender: FDA-Public Use
  Company Number: CO-VERTEX PHARMACEUTICALS INC-2013-008819

PATIENT
  Age: 32 Year
  Sex: Male
  Weight: 72 kg

DRUGS (3)
  1. INCIVO [Suspect]
     Indication: HEPATITIS C
     Dosage: 750 MG, TID (375 MG X 2 EVERY 8 HOURS)
     Route: 048
     Dates: start: 20130705
  2. INTERFERON [Concomitant]
     Indication: HEPATITIS C
     Dosage: DOSAGE FORM: AMPOULES: ONE DOSE EVERY 8 DAYS
     Route: 058
     Dates: start: 20130705
  3. RIBAVIRIN [Concomitant]
     Indication: HEPATITIS C
     Dosage: DOSAGE FORM: TABLET
     Route: 048
     Dates: start: 20130705

REACTIONS (6)
  - Pyrexia [Unknown]
  - Malaise [Unknown]
  - Headache [Unknown]
  - Migraine [Unknown]
  - Sleep disorder [Unknown]
  - Urticaria [Unknown]
